FAERS Safety Report 9244448 (Version 2)
Quarter: 2013Q2

REPORT INFORMATION
  Report Type: Report from Study
  Country: CL (occurrence: CL)
  Receive Date: 20130422
  Receipt Date: 20130605
  Transmission Date: 20140414
  Serious: Yes (Other)
  Sender: FDA-Public Use
  Company Number: PHHY2013CL038411

PATIENT
  Age: 56 Year
  Sex: Female

DRUGS (1)
  1. TAREG D [Suspect]
     Indication: HYPERTENSION
     Dosage: 160/12.5 MG, QD
     Route: 048
     Dates: start: 2000

REACTIONS (3)
  - Dermal cyst [Recovered/Resolved]
  - Discomfort [Unknown]
  - Blood pressure increased [Recovered/Resolved]
